FAERS Safety Report 5911561-5 (Version None)
Quarter: 2008Q4

REPORT INFORMATION
  Report Type: 
  Country: None (occurrence: None)
  Receive Date: 20081007
  Receipt Date: 20080930
  Transmission Date: 20090506
  Serious: Yes (Death, Life-Threatening, Hospitalization)
  Sender: FDA-Public Use
  Company Number: DE-ABBOTT-07P-062-0376762-00

PATIENT
  Sex: Female
  Weight: 39 kg

DRUGS (15)
  1. KALETRA [Suspect]
     Indication: HIV INFECTION
     Route: 048
     Dates: start: 20070525, end: 20070602
  2. KALETRA [Suspect]
     Route: 048
     Dates: start: 20070705, end: 20070712
  3. TUBERCULOSIS CHEMOTHERAPY [Suspect]
     Indication: TUBERCULOSIS
  4. TRUVADA [Concomitant]
     Indication: HIV INFECTION
     Route: 048
     Dates: start: 20070525, end: 20070602
  5. TRUVADA [Concomitant]
     Route: 048
     Dates: start: 20070705, end: 20070712
  6. CYCLOPHOSPHAMIDE [Concomitant]
     Indication: NON-HODGKIN'S LYMPHOMA
     Dates: end: 20070712
  7. DOXORUBICIN HCL [Concomitant]
     Indication: NON-HODGKIN'S LYMPHOMA
     Dates: end: 20070712
  8. VINCRISTINE [Concomitant]
     Indication: NON-HODGKIN'S LYMPHOMA
     Dates: end: 20070712
  9. PREDNISONE [Concomitant]
     Indication: NON-HODGKIN'S LYMPHOMA
     Dates: end: 20070609
  10. PANTOPRAZOLE SODIUM [Concomitant]
     Indication: DRUG USE FOR UNKNOWN INDICATION
     Route: 048
     Dates: start: 20070531
  11. VOLTAREN RES [Concomitant]
     Indication: DRUG USE FOR UNKNOWN INDICATION
     Route: 048
     Dates: start: 20070531
  12. FRAGMIN 0.25 [Concomitant]
     Indication: DRUG USE FOR UNKNOWN INDICATION
     Route: 058
     Dates: start: 20070531
  13. RITUXIMAB [Concomitant]
     Indication: NON-HODGKIN'S LYMPHOMA
     Dates: end: 20070712
  14. RIFAMPICIN [Concomitant]
     Indication: TUBERCULOSIS
     Route: 048
     Dates: start: 20070606
  15. ETHAMBUTOL HYDROCHLORIDE [Concomitant]
     Indication: TUBERCULOSIS
     Route: 048
     Dates: start: 20070606

REACTIONS (5)
  - CACHEXIA [None]
  - CD4 LYMPHOCYTES DECREASED [None]
  - INFECTION [None]
  - NAUSEA [None]
  - PYREXIA [None]
